FAERS Safety Report 7948878-9 (Version None)
Quarter: 2011Q4

REPORT INFORMATION
  Report Type: 
  Country: None (occurrence: None)
  Receive Date: 20111128
  Receipt Date: 20111128
  Transmission Date: 20120403
  Serious: Yes (Hospitalization)
  Sender: FDA-Public Use
  Company Number: None

PATIENT
  Sex: Female
  Weight: 99.4 kg

DRUGS (2)
  1. PACLITAXEL [Suspect]
     Indication: NON-SMALL CELL LUNG CANCER STAGE III
     Dosage: 100MG/M2 WEEKLY IV (042)
     Route: 042
     Dates: start: 20110830, end: 20111114
  2. CARBOPLATIN [Suspect]
     Dosage: AVC=6 ONCE EVERY 4 WEEKS IV
     Route: 042
     Dates: start: 20110830, end: 20111114

REACTIONS (2)
  - CHEST PAIN [None]
  - PNEUMONIA [None]
